FAERS Safety Report 24315594 (Version 1)
Quarter: 2024Q3

REPORT INFORMATION
  Report Type: Spontaneous
  Country: US (occurrence: None)
  Receive Date: 20240912
  Receipt Date: 20240912
  Transmission Date: 20241017
  Serious: Yes (Disabling)
  Sender: Public
  Company Number: None

PATIENT
  Age: 39 Year
  Sex: Female
  Weight: 42.75 kg

DRUGS (2)
  1. CIPROFLOXACIN [Suspect]
     Active Substance: CIPROFLOXACIN
     Indication: Urinary tract infection
     Dosage: OTHER QUANTITY : 1 TABLET(S);?FREQUENCY : TWICE A DAY;?
     Route: 048
     Dates: start: 20231227, end: 20231228
  2. CIPROFLOXACIN [Suspect]
     Active Substance: CIPROFLOXACIN
     Indication: Kidney infection

REACTIONS (7)
  - Paraesthesia [None]
  - Therapy cessation [None]
  - Tendon pain [None]
  - Musculoskeletal stiffness [None]
  - Gait inability [None]
  - Loss of personal independence in daily activities [None]
  - Muscle tightness [None]

NARRATIVE: CASE EVENT DATE: 20231227
